FAERS Safety Report 8791010 (Version 1)
Quarter: 2012Q4

REPORT INFORMATION
  Report Type: Spontaneous
  Country: FR (occurrence: None)
  Receive Date: 20120907
  Receipt Date: 20120907
  Transmission Date: 20130627
  Serious: Yes (Hospitalization)
  Sender: FDA-Public Use
  Company Number: DSA_59327_2012

PATIENT
  Age: 77 Year
  Sex: Male

DRUGS (5)
  1. FLAGYL [Suspect]
     Route: 041
     Dates: start: 20120625, end: 20120724
  2. DALACIN [Suspect]
     Route: 042
  3. PIPERACILLIN TAZOBACTRIM [Concomitant]
  4. ZELITREX [Concomitant]
  5. ZYVOXID [Concomitant]

REACTIONS (2)
  - Erythema multiforme [None]
  - Rash [None]
